FAERS Safety Report 24696117 (Version 1)
Quarter: 2024Q4

REPORT INFORMATION
  Report Type: Spontaneous
  Country: TH (occurrence: TH)
  Receive Date: 20241204
  Receipt Date: 20241204
  Transmission Date: 20250115
  Serious: Yes (Hospitalization)
  Sender: ACCORD
  Company Number: TH-MLMSERVICE-20241118-PI259997-00218-3

PATIENT
  Age: 69 Year
  Sex: Female

DRUGS (13)
  1. METHOTREXATE [Suspect]
     Active Substance: METHOTREXATE
     Indication: Diffuse large B-cell lymphoma stage IV
     Dosage: UNDERWENT EIGHT CYCLES
     Route: 037
     Dates: end: 20220902
  2. DOXORUBICIN [Suspect]
     Active Substance: DOXORUBICIN
     Indication: Diffuse large B-cell lymphoma stage IV
     Dosage: UNDERWENT EIGHT CYCLES
  3. PREDNISOLONE [Suspect]
     Active Substance: PREDNISOLONE
     Indication: COVID-19 pneumonia
     Dosage: TAPERING FROM 40 MG TO 15 MG/DAY OVER 60 DAYS)
     Dates: start: 20221209
  4. CYCLOPHOSPHAMIDE [Suspect]
     Active Substance: CYCLOPHOSPHAMIDE
     Indication: Diffuse large B-cell lymphoma stage IV
     Dosage: UNDERWENT EIGHT CYCLES
  5. VINCRISTINE [Suspect]
     Active Substance: VINCRISTINE
     Indication: Diffuse large B-cell lymphoma stage IV
     Dosage: UNDERWENT EIGHT CYCLES
  6. DEXAMETHASONE [Suspect]
     Active Substance: DEXAMETHASONE
     Indication: Diffuse large B-cell lymphoma stage IV
     Dosage: UNDERWENT EIGHT CYCLES
  7. RITUXIMAB [Suspect]
     Active Substance: RITUXIMAB
     Indication: Diffuse large B-cell lymphoma stage IV
     Dosage: UNDERWENT EIGHT CYCLES
     Dates: end: 20220902
  8. OXYGEN [Concomitant]
     Active Substance: OXYGEN
     Indication: COVID-19 pneumonia
     Dosage: CANULA
     Dates: start: 202212
  9. PREDNISOLONE [Suspect]
     Active Substance: PREDNISOLONE
     Indication: COVID-19 pneumonia
     Dosage: TAPERING FROM 40 MG TO 15 MG/DAY OVER 60 DAYS)
     Dates: end: 20230209
  10. PREDNISOLONE [Suspect]
     Active Substance: PREDNISOLONE
     Indication: Organising pneumonia
     Dosage: TAPERING FROM 40 MG TO 15 MG/DAY OVER 60 DAYS)
     Dates: start: 20221209
  11. OXYGEN [Concomitant]
     Active Substance: OXYGEN
     Indication: Organising pneumonia
     Dosage: CANULA
     Dates: start: 202212
  12. DEXAMETHASONE [Suspect]
     Active Substance: DEXAMETHASONE
     Indication: COVID-19 pneumonia
     Dates: start: 20221204, end: 20221208
  13. DEXAMETHASONE [Suspect]
     Active Substance: DEXAMETHASONE
     Indication: Organising pneumonia
     Dates: start: 20221204, end: 20221208

REACTIONS (4)
  - Organising pneumonia [Recovering/Resolving]
  - COVID-19 [Recovering/Resolving]
  - COVID-19 pneumonia [Recovering/Resolving]
  - Acute respiratory failure [Recovering/Resolving]

NARRATIVE: CASE EVENT DATE: 20221201
